FAERS Safety Report 15887347 (Version 1)
Quarter: 2019Q1

REPORT INFORMATION
  Report Type: Spontaneous
  Country: CN (occurrence: CN)
  Receive Date: 20190130
  Receipt Date: 20190130
  Transmission Date: 20190417
  Serious: Yes (Hospitalization, Other)
  Sender: FDA-Public Use
  Company Number: CN-ROCHE-2251658

PATIENT
  Age: 37 Year
  Sex: Female

DRUGS (17)
  1. TACROLIMUS. [Concomitant]
     Active Substance: TACROLIMUS
     Indication: IMMUNOSUPPRESSION
     Route: 065
  2. GANCICLOVIR. [Concomitant]
     Active Substance: GANCICLOVIR
     Route: 065
  3. VFEND [Concomitant]
     Active Substance: VORICONAZOLE
     Route: 065
  4. ATG-FRESENIUS [Concomitant]
     Active Substance: LAPINE T-LYMPHOCYTE IMMUNE GLOBULIN
     Route: 065
  5. CANCIDAS [Concomitant]
     Active Substance: CASPOFUNGIN ACETATE
     Route: 065
  6. SULFAMETHOXAZOLE [Concomitant]
     Active Substance: SULFAMETHOXAZOLE
     Dosage: DOSE: 0.56
     Route: 065
  7. TARGOCID [Concomitant]
     Active Substance: TEICOPLANIN
     Route: 065
  8. CELLCEPT [Suspect]
     Active Substance: MYCOPHENOLATE MOFETIL\MYCOPHENOLATE MOFETIL HYDROCHLORIDE
     Indication: IMMUNOSUPPRESSION
     Route: 065
     Dates: start: 20170220
  9. METHYLPREDNISOLONE. [Concomitant]
     Active Substance: METHYLPREDNISOLONE
     Route: 065
  10. TIENAM [Concomitant]
     Active Substance: CILASTATIN SODIUM\IMIPENEM
     Indication: INFECTION PROPHYLAXIS
     Route: 065
  11. MYFORTIC [Concomitant]
     Active Substance: MYCOPHENOLATE SODIUM
     Route: 065
     Dates: end: 20170214
  12. MEPEM [Concomitant]
     Active Substance: MEROPENEM
     Route: 065
  13. PIPERACILLIN TAZOBACTAM KABI [Concomitant]
     Active Substance: PIPERACILLIN SODIUM\TAZOBACTAM SODIUM
     Route: 065
  14. SULPERAZON [Concomitant]
     Active Substance: CEFOPERAZONE SODIUM\SULBACTAM SODIUM
     Indication: INFECTION PROPHYLAXIS
     Route: 065
  15. ZYVOX [Concomitant]
     Active Substance: LINEZOLID
     Route: 065
  16. PROGRAF [Concomitant]
     Active Substance: TACROLIMUS\TACROLIMUS ANHYDROUS
  17. PREDNISONE. [Concomitant]
     Active Substance: PREDNISONE
     Route: 065

REACTIONS (10)
  - Pneumonitis [Unknown]
  - Atelectasis [Unknown]
  - Pyrexia [Unknown]
  - Pericardial effusion [Unknown]
  - Chest pain [Unknown]
  - Pulmonary fibrosis [Unknown]
  - Pleural adhesion [Unknown]
  - Tuberculosis [Unknown]
  - Diarrhoea [Unknown]
  - Pleural thickening [Unknown]
